FAERS Safety Report 5497116-8 (Version None)
Quarter: 2007Q4

REPORT INFORMATION
  Report Type: 
  Country: None (occurrence: None)
  Receive Date: 20071023
  Receipt Date: 20071017
  Transmission Date: 20080405
  Serious: Yes (Hospitalization)
  Sender: FDA-Public Use
  Company Number: 2007RL000460

PATIENT
  Age: 4 Year
  Sex: Female
  Weight: 16 kg

DRUGS (1)
  1. PROPAFENONE HCL [Suspect]
     Dosage: X1; ORAL
     Route: 048
     Dates: start: 20071012, end: 20071012

REACTIONS (1)
  - ACCIDENTAL DRUG INTAKE BY CHILD [None]
